FAERS Safety Report 19310064 (Version 2)
Quarter: 2021Q4

REPORT INFORMATION
  Report Type: Report from Study
  Country: DE (occurrence: DE)
  Receive Date: 20210526
  Receipt Date: 20211012
  Transmission Date: 20220303
  Serious: Yes (Hospitalization)
  Sender: FDA-Public Use
  Company Number: DE-TAKEDA-2021TUS032531

PATIENT
  Age: 40 Year
  Weight: 95 kg

DRUGS (27)
  1. ANTIHEMOPHILIC FACTOR, PEGYLATED (MW 20000) HUMAN SEQUENCE RECOMBINANT [Suspect]
     Active Substance: ANTIHEMOPHILIC FACTOR, PEGYLATED (MW 20000) HUMAN SEQUENCE RECOMBINANT
     Indication: Haemophilia
     Dosage: 2000 INTERNATIONAL UNIT, QOD
     Route: 042
     Dates: start: 20180502, end: 20180612
  2. ANTIHEMOPHILIC FACTOR, PEGYLATED (MW 20000) HUMAN SEQUENCE RECOMBINANT [Suspect]
     Active Substance: ANTIHEMOPHILIC FACTOR, PEGYLATED (MW 20000) HUMAN SEQUENCE RECOMBINANT
     Indication: Haemophilia
     Dosage: 2000 INTERNATIONAL UNIT, QOD
     Route: 042
     Dates: start: 20180502, end: 20180612
  3. ANTIHEMOPHILIC FACTOR, PEGYLATED (MW 20000) HUMAN SEQUENCE RECOMBINANT [Suspect]
     Active Substance: ANTIHEMOPHILIC FACTOR, PEGYLATED (MW 20000) HUMAN SEQUENCE RECOMBINANT
     Indication: Haemophilia
     Dosage: 2000 INTERNATIONAL UNIT, QOD
     Route: 042
     Dates: start: 20180502, end: 20180612
  4. IBUPROFEN [Concomitant]
     Active Substance: IBUPROFEN
     Indication: Pain
     Dosage: 500 MILLIGRAM, QID
     Route: 048
     Dates: start: 20121119, end: 20121123
  5. IBUPROFEN [Concomitant]
     Active Substance: IBUPROFEN
     Indication: Procedural pain
     Dosage: 400 MILLIGRAM, TID
     Route: 048
     Dates: start: 20130502, end: 20130515
  6. IBUPROFEN [Concomitant]
     Active Substance: IBUPROFEN
     Indication: Hip surgery
     Dosage: 600 MILLIGRAM
     Route: 048
     Dates: start: 20140219
  7. IBUPROFEN [Concomitant]
     Active Substance: IBUPROFEN
     Dosage: 1800 MILLGRAM, QD
     Route: 048
     Dates: start: 20180614, end: 20180621
  8. IBUPROFEN [Concomitant]
     Active Substance: IBUPROFEN
     Dosage: 600 MILLIGRAM, TID
     Route: 048
     Dates: start: 20180219, end: 20180225
  9. PANTOPRAZOLE SODIUM [Concomitant]
     Active Substance: PANTOPRAZOLE SODIUM
     Indication: Abdominal discomfort
     Dosage: 40 MILLIGRAM, QD
     Route: 048
     Dates: start: 20121119, end: 20121123
  10. PANTOPRAZOLE SODIUM [Concomitant]
     Active Substance: PANTOPRAZOLE SODIUM
     Dosage: 40 MILLIGRAM, QD
     Route: 048
     Dates: start: 20130502, end: 20130515
  11. PANTOPRAZOLE SODIUM [Concomitant]
     Active Substance: PANTOPRAZOLE SODIUM
     Dosage: 40 MILLIGRAM, QD
     Route: 048
     Dates: start: 20140219
  12. PANTOPRAZOLE SODIUM [Concomitant]
     Active Substance: PANTOPRAZOLE SODIUM
     Dosage: 40 MILLIGRAM, QD
     Route: 048
     Dates: start: 20180614, end: 20180621
  13. PANTOPRAZOLE SODIUM [Concomitant]
     Active Substance: PANTOPRAZOLE SODIUM
     Dosage: 40 MILLIGRAM, QD
     Route: 048
     Dates: start: 20180219, end: 20180225
  14. ENOXAPARIN SODIUM [Concomitant]
     Active Substance: ENOXAPARIN SODIUM
     Indication: Thrombosis prophylaxis
     Dosage: 40 MILLIGRAM, QD
     Route: 058
     Dates: start: 20121119, end: 20121123
  15. ENOXAPARIN SODIUM [Concomitant]
     Active Substance: ENOXAPARIN SODIUM
     Dosage: 40 MILLIGRAM, QD
     Route: 058
     Dates: start: 20130502, end: 20130515
  16. ENOXAPARIN SODIUM [Concomitant]
     Active Substance: ENOXAPARIN SODIUM
     Dosage: 40 MILLIGRAM, QD
     Route: 058
     Dates: start: 20180219, end: 20180224
  17. ENOXAPARIN SODIUM [Concomitant]
     Active Substance: ENOXAPARIN SODIUM
     Dosage: 40 MILLIGRAM, QD
     Route: 058
     Dates: start: 20180614, end: 20180621
  18. NOVALGIN [Concomitant]
     Indication: Pain
     Dosage: 500 MILLIGRAM
     Route: 048
     Dates: start: 20140219
  19. NOVALGIN [Concomitant]
     Indication: Hip surgery
     Dosage: 1000 MILLIGRAM, QID
     Route: 048
     Dates: start: 20180219, end: 20180225
  20. CHOLECALCIFEROL [Concomitant]
     Active Substance: CHOLECALCIFEROL
     Indication: Vitamin D deficiency
     Dosage: 1000 INTERNATIONAL UNIT, QD
     Route: 048
     Dates: start: 20160907
  21. NALOXONE HYDROCHLORIDE\TILIDINE HYDROCHLORIDE [Concomitant]
     Active Substance: NALOXONE HYDROCHLORIDE\TILIDINE HYDROCHLORIDE
     Indication: Haemophilic arthropathy
     Dosage: UNK
     Route: 048
     Dates: start: 20170705, end: 201901
  22. OXYCODONE [Concomitant]
     Active Substance: OXYCODONE
     Indication: Pain
     Dosage: 160 MILLIGRAM, QD
     Route: 048
     Dates: start: 20180614, end: 20180621
  23. OXYCODONE [Concomitant]
     Active Substance: OXYCODONE
     Indication: Procedural pain
  24. DOLOPHINE [Concomitant]
     Active Substance: METHADONE HYDROCHLORIDE
     Indication: Detoxification
     Dosage: UNK
     Route: 048
     Dates: start: 201901, end: 201904
  25. TRANEXAMIC ACID [Concomitant]
     Active Substance: TRANEXAMIC ACID
     Indication: Tooth extraction
     Dosage: 3 GRAM, QD
     Route: 048
     Dates: start: 20190512, end: 20190517
  26. ARCOXIA [Concomitant]
     Active Substance: ETORICOXIB
     Indication: Haemophilic arthropathy
     Dosage: 90 MILLIGRAM
     Route: 048
     Dates: start: 20190306, end: 20191031
  27. OXYCODONE [Concomitant]
     Active Substance: OXYCODONE
     Indication: Hip surgery
     Dosage: 40 MILLIGRAM, BID
     Route: 048
     Dates: start: 20180219, end: 20180225

REACTIONS (2)
  - Arthropathy [Recovered/Resolved]
  - Condition aggravated [Recovered/Resolved]

NARRATIVE: CASE EVENT DATE: 20180613
